FAERS Safety Report 14886791 (Version 1)
Quarter: 2018Q2

REPORT INFORMATION
  Report Type: Spontaneous
  Country: CN (occurrence: CN)
  Receive Date: 20180512
  Receipt Date: 20180512
  Transmission Date: 20180711
  Serious: Yes (Other)
  Sender: FDA-Public Use
  Company Number: CN-SA-2018SA129758

PATIENT
  Age: 54 Year
  Sex: Male
  Weight: 68 kg

DRUGS (4)
  1. HEPARIN SODIUM. [Suspect]
     Active Substance: HEPARIN SODIUM
     Indication: ACUTE MYOCARDIAL INFARCTION
     Dosage: DOSE:4000 UNIT(S)
     Route: 042
     Dates: start: 20180213, end: 20180213
  2. HEPARIN SODIUM. [Suspect]
     Active Substance: HEPARIN SODIUM
     Indication: ANTICOAGULANT THERAPY
     Dosage: DOSE:4000 UNIT(S)
     Route: 042
     Dates: start: 20180213, end: 20180213
  3. CLEXANE [Suspect]
     Active Substance: ENOXAPARIN SODIUM
     Indication: ACUTE MYOCARDIAL INFARCTION
     Route: 051
     Dates: start: 20180213, end: 20180213
  4. CLEXANE [Suspect]
     Active Substance: ENOXAPARIN SODIUM
     Indication: ANTICOAGULANT THERAPY
     Route: 051
     Dates: start: 20180213, end: 20180213

REACTIONS (1)
  - Coagulation time prolonged [Recovered/Resolved]

NARRATIVE: CASE EVENT DATE: 20180213
